FAERS Safety Report 9395659 (Version 2)
Quarter: 2013Q4

REPORT INFORMATION
  Report Type: Spontaneous
  Country: US (occurrence: US)
  Receive Date: 20130711
  Receipt Date: 20131021
  Transmission Date: 20140711
  Serious: Yes (Death, Other)
  Sender: FDA-Public Use
  Company Number: US-GILEAD-2013-0078775

PATIENT
  Age: 23 Year
  Sex: 0

DRUGS (1)
  1. LETAIRIS [Suspect]
     Indication: PORTAL HYPERTENSION
     Route: 048
     Dates: start: 20120901

REACTIONS (1)
  - Death [Fatal]
